FAERS Safety Report 12647282 (Version 3)
Quarter: 2017Q4

REPORT INFORMATION
  Report Type: Spontaneous
  Country: NL (occurrence: NL)
  Receive Date: 20160812
  Receipt Date: 20171011
  Transmission Date: 20180320
  Serious: Yes (Life-Threatening, Hospitalization, Other)
  Sender: FDA-Public Use
  Company Number: NL-SUN PHARMACEUTICAL INDUSTRIES LTD-2016R1-121851

PATIENT
  Age: 43 Year
  Sex: Male

DRUGS (3)
  1. OXAZEPAM. [Suspect]
     Active Substance: OXAZEPAM
     Indication: PRODUCT USED FOR UNKNOWN INDICATION
     Dosage: 1.1 GRAM
     Route: 048
  2. QUETIAPINE. [Suspect]
     Active Substance: QUETIAPINE
     Indication: PRODUCT USED FOR UNKNOWN INDICATION
     Dosage: 13 G
     Route: 048
  3. VALPROIC ACID. [Suspect]
     Active Substance: VALPROIC ACID
     Indication: PRODUCT USED FOR UNKNOWN INDICATION
     Dosage: 45 G
     Route: 048

REACTIONS (8)
  - Blood creatine phosphokinase increased [Unknown]
  - Toxicity to various agents [Recovered/Resolved]
  - Electrocardiogram QT prolonged [Unknown]
  - Intentional overdose [Recovered/Resolved]
  - Coma [Recovered/Resolved]
  - Haemodynamic instability [Unknown]
  - Hepatic function abnormal [Recovered/Resolved]
  - Hyperammonaemia [Recovered/Resolved]
